FAERS Safety Report 22813018 (Version 2)
Quarter: 2023Q4

REPORT INFORMATION
  Report Type: Spontaneous
  Country: US (occurrence: None)
  Receive Date: 20230811
  Receipt Date: 20231107
  Transmission Date: 20240109
  Serious: No
  Sender: FDA-Public Use
  Company Number: US-ROCHE-3375733

PATIENT
  Sex: Female
  Weight: 55.3 kg

DRUGS (3)
  1. SUSVIMO [Suspect]
     Active Substance: RANIBIZUMAB
     Indication: Neovascular age-related macular degeneration
     Route: 050
  2. SUSVIMO [Suspect]
     Active Substance: RANIBIZUMAB
  3. SUSVIMO [Suspect]
     Active Substance: RANIBIZUMAB

REACTIONS (6)
  - Conjunctival erosion [Unknown]
  - Corneal thinning [Unknown]
  - Ocular implant exposure [Unknown]
  - Dellen [Not Recovered/Not Resolved]
  - Conjunctival thinning [Not Recovered/Not Resolved]
  - Ulcerative keratitis [Not Recovered/Not Resolved]

NARRATIVE: CASE EVENT DATE: 20230622
